FAERS Safety Report 5531324-2 (Version None)
Quarter: 2007Q4

REPORT INFORMATION
  Report Type: 
  Country: None (occurrence: None)
  Receive Date: 20071128
  Receipt Date: 20071113
  Transmission Date: 20080405
  Serious: Yes (Life-Threatening, Disabling)
  Sender: FDA-Public Use
  Company Number: 2007S1011748

PATIENT
  Age: 38 Year
  Sex: Female
  Weight: 54 kg

DRUGS (9)
  1. ONDANSETRON HYDROCHLORIDE [Suspect]
     Indication: PROPHYLAXIS OF NAUSEA AND VOMITING
     Dosage: 4 MG; TWICE A DAY;
     Dates: start: 19980502, end: 19980502
  2. CYCLOPHOSPHAMIDE (CYCLOPHOSPHAMIDE) [Suspect]
     Indication: DRUG USE FOR UNKNOWN INDICATION
     Dates: start: 19971108, end: 19980502
  3. BENZTROPINE (CON.) [Concomitant]
  4. BUMETANIDE (CON.) [Concomitant]
  5. DEXAMETHASONE (CON.) [Concomitant]
  6. ENALAPRIL (CON.) [Concomitant]
  7. MESNA (CON.) [Concomitant]
  8. PREDNISOLONE (CON.) [Concomitant]
  9. THYROXINE (CON.) [Concomitant]

REACTIONS (6)
  - FLUSHING [None]
  - HEPATIC NECROSIS [None]
  - HEPATITIS [None]
  - PROTHROMBIN TIME PROLONGED [None]
  - PURPURA [None]
  - RASH PRURITIC [None]
